FAERS Safety Report 14931410 (Version 3)
Quarter: 2018Q2

REPORT INFORMATION
  Report Type: Spontaneous
  Country: DE (occurrence: DE)
  Receive Date: 20180524
  Receipt Date: 20180619
  Transmission Date: 20180711
  Serious: Yes (Hospitalization, Other)
  Sender: FDA-Public Use
  Company Number: DE-ALK-ABELLO A/S-2018AA001443

PATIENT

DRUGS (5)
  1. GRAZAX [Suspect]
     Active Substance: PHLEUM PRATENSE POLLEN
     Indication: PRODUCT USED FOR UNKNOWN INDICATION
     Dosage: 75000 SQ-T
     Dates: start: 20170515, end: 20180227
  2. SALBUTAMOL [Concomitant]
     Active Substance: ALBUTEROL
  3. CETRIZIN                           /00522803/ [Concomitant]
  4. VIANI [Concomitant]
     Active Substance: FLUTICASONE PROPIONATE\SALMETEROL XINAFOATE
     Dosage: 1 PUFF IN THE MORNING
  5. VITAMIN D                          /00107901/ [Concomitant]
     Active Substance: ERGOCALCIFEROL
     Dosage: 10000 IE

REACTIONS (1)
  - Crohn^s disease [Not Recovered/Not Resolved]

NARRATIVE: CASE EVENT DATE: 20180227
